FAERS Safety Report 25576517 (Version 1)
Quarter: 2025Q3

REPORT INFORMATION
  Report Type: Spontaneous
  Country: US (occurrence: None)
  Receive Date: 20250717
  Receipt Date: 20250717
  Transmission Date: 20251021
  Serious: No
  Sender: FDA-CTU
  Company Number: None

PATIENT
  Age: 47 Year
  Sex: Male
  Weight: 102.06 kg

DRUGS (5)
  1. WEGOVY [Suspect]
     Active Substance: SEMAGLUTIDE
  2. ZEPBOUND [Suspect]
     Active Substance: TIRZEPATIDE
  3. DEVICE [Concomitant]
     Active Substance: DEVICE
  4. Methocarbamal [Concomitant]
  5. AMLODIPINE [Concomitant]
     Active Substance: AMLODIPINE BESYLATE

REACTIONS (9)
  - Blood creatinine increased [None]
  - Blood glucose increased [None]
  - Hepatic steatosis [None]
  - Gallbladder polyp [None]
  - Nephrolithiasis [None]
  - Cholecystitis acute [None]
  - Cholesterosis [None]
  - Adenomyosis [None]
  - Cholecystitis chronic [None]
